FAERS Safety Report 16433624 (Version 1)
Quarter: 2019Q2

REPORT INFORMATION
  Report Type: Spontaneous
  Country: US (occurrence: US)
  Receive Date: 20190614
  Receipt Date: 20190614
  Transmission Date: 20190711
  Serious: No
  Sender: FDA-Public Use
  Company Number: US-JNJFOC-20150703052

PATIENT
  Sex: Male

DRUGS (84)
  1. RISPERDAL [Suspect]
     Active Substance: RISPERIDONE
     Indication: AUTISM SPECTRUM DISORDER
     Dosage: 1MG/ML,0.5ML
     Route: 048
     Dates: start: 20070207, end: 20070604
  2. RISPERDAL [Suspect]
     Active Substance: RISPERIDONE
     Indication: SENSORY INTEGRATIVE DYSFUNCTION
     Dosage: 1MG/ML,0.75ML,0.5ML
     Route: 048
     Dates: start: 20040426, end: 20070411
  3. RISPERDAL [Suspect]
     Active Substance: RISPERIDONE
     Indication: SENSORY INTEGRATIVE DYSFUNCTION
     Route: 048
     Dates: start: 20041011
  4. RISPERDAL [Suspect]
     Active Substance: RISPERIDONE
     Indication: SENSORY INTEGRATIVE DYSFUNCTION
     Route: 048
     Dates: start: 20110207, end: 20110307
  5. RISPERDAL [Suspect]
     Active Substance: RISPERIDONE
     Indication: AUTISM SPECTRUM DISORDER
     Route: 048
     Dates: start: 20120703, end: 20131105
  6. RISPERDAL [Suspect]
     Active Substance: RISPERIDONE
     Indication: AUTISM SPECTRUM DISORDER
     Dosage: 1MG/ML,0.5ML,1ML,1.5ML, 2.5ML
     Route: 048
     Dates: start: 20060106, end: 20080604
  7. RISPERDAL [Suspect]
     Active Substance: RISPERIDONE
     Indication: SENSORY INTEGRATIVE DYSFUNCTION
     Dosage: 1MG/ML,0.5ML
     Route: 048
     Dates: start: 20070207, end: 20070604
  8. RISPERDAL [Suspect]
     Active Substance: RISPERIDONE
     Indication: SENSORY INTEGRATIVE DYSFUNCTION
     Dosage: 0.75ML ,0.5ML
     Route: 048
     Dates: start: 20021118
  9. RISPERDAL [Suspect]
     Active Substance: RISPERIDONE
     Indication: AUTISM SPECTRUM DISORDER
     Route: 048
     Dates: start: 20030527
  10. RISPERDAL [Suspect]
     Active Substance: RISPERIDONE
     Indication: ATTENTION DEFICIT/HYPERACTIVITY DISORDER
     Route: 048
     Dates: start: 20101221
  11. RISPERDAL [Suspect]
     Active Substance: RISPERIDONE
     Indication: AUTISM SPECTRUM DISORDER
     Dosage: 0.25MG,2MG
     Route: 048
     Dates: start: 20020731, end: 20100902
  12. RISPERDAL [Suspect]
     Active Substance: RISPERIDONE
     Indication: AUTISM SPECTRUM DISORDER
     Route: 048
     Dates: start: 20101221
  13. RISPERDAL [Suspect]
     Active Substance: RISPERIDONE
     Indication: SENSORY INTEGRATIVE DYSFUNCTION
     Dosage: 0.25MG,2MG
     Route: 048
     Dates: start: 20020731, end: 20100902
  14. RISPERDAL [Suspect]
     Active Substance: RISPERIDONE
     Indication: SENSORY INTEGRATIVE DYSFUNCTION
     Route: 048
     Dates: start: 20101022
  15. RISPERDAL [Suspect]
     Active Substance: RISPERIDONE
     Indication: AUTISM SPECTRUM DISORDER
     Route: 048
     Dates: start: 20101105
  16. RISPERDAL [Suspect]
     Active Substance: RISPERIDONE
     Indication: ATTENTION DEFICIT/HYPERACTIVITY DISORDER
     Route: 048
     Dates: start: 20041011
  17. RISPERDAL [Suspect]
     Active Substance: RISPERIDONE
     Indication: ATTENTION DEFICIT/HYPERACTIVITY DISORDER
     Route: 048
     Dates: start: 20060515, end: 20061227
  18. RISPERDAL [Suspect]
     Active Substance: RISPERIDONE
     Indication: ATTENTION DEFICIT/HYPERACTIVITY DISORDER
     Dosage: 1MG/1ML
     Route: 048
     Dates: start: 20060228
  19. RISPERDAL [Suspect]
     Active Substance: RISPERIDONE
     Indication: AUTISM SPECTRUM DISORDER
     Route: 048
     Dates: start: 20021011
  20. RISPERDAL [Suspect]
     Active Substance: RISPERIDONE
     Indication: AUTISM SPECTRUM DISORDER
     Dosage: 1MG/ML,0.75ML,0.5ML
     Route: 048
     Dates: start: 20040426, end: 20070411
  21. RISPERDAL [Suspect]
     Active Substance: RISPERIDONE
     Indication: AUTISM SPECTRUM DISORDER
     Route: 048
     Dates: start: 20060515, end: 20061227
  22. RISPERDAL [Suspect]
     Active Substance: RISPERIDONE
     Indication: AUTISM SPECTRUM DISORDER
     Dosage: 1MG/ML,0.5ML,1ML,1.5ML, 2.5ML
     Route: 048
     Dates: start: 20060106, end: 20080604
  23. RISPERDAL [Suspect]
     Active Substance: RISPERIDONE
     Indication: ATTENTION DEFICIT/HYPERACTIVITY DISORDER
     Route: 048
     Dates: start: 20021205, end: 20030402
  24. RISPERDAL [Suspect]
     Active Substance: RISPERIDONE
     Indication: AUTISM SPECTRUM DISORDER
     Route: 048
     Dates: start: 20140207
  25. RISPERDAL [Suspect]
     Active Substance: RISPERIDONE
     Indication: AUTISM SPECTRUM DISORDER
     Route: 048
     Dates: start: 20040405
  26. RISPERDAL [Suspect]
     Active Substance: RISPERIDONE
     Indication: AUTISM SPECTRUM DISORDER
     Route: 048
     Dates: start: 20080917, end: 20110504
  27. RISPERDAL [Suspect]
     Active Substance: RISPERIDONE
     Indication: AUTISM SPECTRUM DISORDER
     Route: 048
     Dates: start: 20021205, end: 20030402
  28. RISPERDAL [Suspect]
     Active Substance: RISPERIDONE
     Indication: AUTISM SPECTRUM DISORDER
     Route: 048
     Dates: start: 20021205, end: 20030402
  29. RISPERDAL [Suspect]
     Active Substance: RISPERIDONE
     Indication: AUTISM SPECTRUM DISORDER
     Route: 048
     Dates: start: 20140207
  30. RISPERDAL [Suspect]
     Active Substance: RISPERIDONE
     Indication: ATTENTION DEFICIT/HYPERACTIVITY DISORDER
     Dosage: 1MG/ML,0.5ML,1ML,1.5ML, 2.5ML
     Route: 048
     Dates: start: 20060106, end: 20080604
  31. RISPERDAL [Suspect]
     Active Substance: RISPERIDONE
     Indication: ATTENTION DEFICIT/HYPERACTIVITY DISORDER
     Route: 048
     Dates: start: 20021011
  32. RISPERDAL [Suspect]
     Active Substance: RISPERIDONE
     Indication: ATTENTION DEFICIT/HYPERACTIVITY DISORDER
     Dosage: 1MG/ML,2.5ML
     Route: 048
     Dates: start: 20071206
  33. RISPERDAL [Suspect]
     Active Substance: RISPERIDONE
     Indication: ATTENTION DEFICIT/HYPERACTIVITY DISORDER
     Route: 048
     Dates: start: 20060406
  34. RISPERDAL [Suspect]
     Active Substance: RISPERIDONE
     Indication: AUTISM SPECTRUM DISORDER
     Dosage: 1MG/1ML
     Route: 048
     Dates: start: 20060228
  35. RISPERDAL [Suspect]
     Active Substance: RISPERIDONE
     Indication: AUTISM SPECTRUM DISORDER
     Route: 048
     Dates: start: 20060515, end: 20061227
  36. RISPERDAL [Suspect]
     Active Substance: RISPERIDONE
     Indication: SENSORY INTEGRATIVE DYSFUNCTION
     Dosage: 1MG/ML,2.5ML
     Route: 048
     Dates: start: 20071206
  37. RISPERDAL [Suspect]
     Active Substance: RISPERIDONE
     Indication: SENSORY INTEGRATIVE DYSFUNCTION
     Route: 048
     Dates: start: 20021011
  38. RISPERDAL [Suspect]
     Active Substance: RISPERIDONE
     Indication: AUTISM SPECTRUM DISORDER
     Dosage: 1MG/ML,0.75ML,0.5ML
     Route: 048
     Dates: start: 20040426, end: 20070411
  39. RISPERDAL [Suspect]
     Active Substance: RISPERIDONE
     Indication: AUTISM SPECTRUM DISORDER
     Route: 048
     Dates: start: 20060406
  40. RISPERDAL [Suspect]
     Active Substance: RISPERIDONE
     Indication: ATTENTION DEFICIT/HYPERACTIVITY DISORDER
     Route: 048
     Dates: start: 20101022
  41. RISPERDAL [Suspect]
     Active Substance: RISPERIDONE
     Indication: AUTISM SPECTRUM DISORDER
     Route: 048
     Dates: start: 20101105
  42. RISPERDAL [Suspect]
     Active Substance: RISPERIDONE
     Indication: SENSORY INTEGRATIVE DYSFUNCTION
     Route: 048
     Dates: start: 20140207
  43. RISPERDAL [Suspect]
     Active Substance: RISPERIDONE
     Indication: SENSORY INTEGRATIVE DYSFUNCTION
     Route: 048
     Dates: start: 20101221
  44. RISPERDAL [Suspect]
     Active Substance: RISPERIDONE
     Indication: AUTISM SPECTRUM DISORDER
     Route: 048
     Dates: start: 20040405
  45. RISPERDAL [Suspect]
     Active Substance: RISPERIDONE
     Indication: ATTENTION DEFICIT/HYPERACTIVITY DISORDER
     Dosage: 1MG/ML,0.5ML
     Route: 048
     Dates: start: 20070207, end: 20070604
  46. RISPERDAL [Suspect]
     Active Substance: RISPERIDONE
     Indication: AUTISM SPECTRUM DISORDER
     Dosage: 1MG/ML,2.5ML
     Route: 048
     Dates: start: 20071206
  47. RISPERDAL [Suspect]
     Active Substance: RISPERIDONE
     Indication: AUTISM SPECTRUM DISORDER
     Route: 048
     Dates: start: 20041011
  48. RISPERDAL [Suspect]
     Active Substance: RISPERIDONE
     Indication: SENSORY INTEGRATIVE DYSFUNCTION
     Dosage: 1MG/ML,0.5ML,1ML,1.5ML, 2.5ML
     Route: 048
     Dates: start: 20060106, end: 20080604
  49. RISPERDAL [Suspect]
     Active Substance: RISPERIDONE
     Indication: SENSORY INTEGRATIVE DYSFUNCTION
     Route: 048
     Dates: start: 20030527
  50. RISPERDAL [Suspect]
     Active Substance: RISPERIDONE
     Indication: AUTISM SPECTRUM DISORDER
     Dosage: 1MG/ML,0.5ML
     Route: 048
     Dates: start: 20070207, end: 20070604
  51. RISPERDAL [Suspect]
     Active Substance: RISPERIDONE
     Indication: ATTENTION DEFICIT/HYPERACTIVITY DISORDER
     Route: 048
     Dates: start: 20120703, end: 20131105
  52. RISPERDAL [Suspect]
     Active Substance: RISPERIDONE
     Indication: ATTENTION DEFICIT/HYPERACTIVITY DISORDER
     Route: 048
     Dates: start: 20140207
  53. RISPERDAL [Suspect]
     Active Substance: RISPERIDONE
     Indication: ATTENTION DEFICIT/HYPERACTIVITY DISORDER
     Route: 048
     Dates: start: 20040405
  54. RISPERDAL [Suspect]
     Active Substance: RISPERIDONE
     Indication: AUTISM SPECTRUM DISORDER
     Route: 048
     Dates: start: 20120703, end: 20131105
  55. RISPERDAL [Suspect]
     Active Substance: RISPERIDONE
     Indication: AUTISM SPECTRUM DISORDER
     Route: 048
     Dates: start: 20101022
  56. RISPERDAL [Suspect]
     Active Substance: RISPERIDONE
     Indication: SENSORY INTEGRATIVE DYSFUNCTION
     Route: 048
     Dates: start: 20080917, end: 20110504
  57. RISPERDAL [Suspect]
     Active Substance: RISPERIDONE
     Indication: ATTENTION DEFICIT/HYPERACTIVITY DISORDER
     Route: 048
     Dates: start: 20030527
  58. RISPERDAL [Suspect]
     Active Substance: RISPERIDONE
     Indication: ATTENTION DEFICIT/HYPERACTIVITY DISORDER
     Dosage: 0.75ML ,0.5ML
     Route: 048
     Dates: start: 20021118
  59. RISPERDAL [Suspect]
     Active Substance: RISPERIDONE
     Indication: SENSORY INTEGRATIVE DYSFUNCTION
     Route: 048
     Dates: start: 20060406
  60. RISPERDAL [Suspect]
     Active Substance: RISPERIDONE
     Indication: AUTISM SPECTRUM DISORDER
     Route: 048
     Dates: start: 20041011
  61. RISPERDAL [Suspect]
     Active Substance: RISPERIDONE
     Indication: AUTISM SPECTRUM DISORDER
     Dosage: 1MG/ML,2.5ML
     Route: 048
     Dates: start: 20071206
  62. RISPERDAL [Suspect]
     Active Substance: RISPERIDONE
     Indication: ATTENTION DEFICIT/HYPERACTIVITY DISORDER
     Route: 048
     Dates: start: 20080917, end: 20110504
  63. RISPERDAL [Suspect]
     Active Substance: RISPERIDONE
     Indication: ATTENTION DEFICIT/HYPERACTIVITY DISORDER
     Route: 048
     Dates: start: 20101105
  64. RISPERDAL [Suspect]
     Active Substance: RISPERIDONE
     Indication: SENSORY INTEGRATIVE DYSFUNCTION
     Route: 048
     Dates: start: 20021205, end: 20030402
  65. RISPERDAL [Suspect]
     Active Substance: RISPERIDONE
     Indication: AUTISM SPECTRUM DISORDER
     Route: 048
     Dates: start: 20101022
  66. RISPERDAL [Suspect]
     Active Substance: RISPERIDONE
     Indication: AUTISM SPECTRUM DISORDER
     Route: 048
     Dates: start: 20030527
  67. RISPERDAL [Suspect]
     Active Substance: RISPERIDONE
     Indication: SENSORY INTEGRATIVE DYSFUNCTION
     Route: 048
     Dates: start: 20060515, end: 20061227
  68. RISPERDAL [Suspect]
     Active Substance: RISPERIDONE
     Indication: AUTISM SPECTRUM DISORDER
     Dosage: 1MG/1ML
     Route: 048
     Dates: start: 20060228
  69. RISPERDAL [Suspect]
     Active Substance: RISPERIDONE
     Indication: AUTISM SPECTRUM DISORDER
     Route: 048
     Dates: start: 20021011
  70. RISPERDAL [Suspect]
     Active Substance: RISPERIDONE
     Indication: ATTENTION DEFICIT/HYPERACTIVITY DISORDER
     Dosage: 0.25MG,2MG
     Route: 048
     Dates: start: 20020731, end: 20100902
  71. RISPERDAL [Suspect]
     Active Substance: RISPERIDONE
     Indication: ATTENTION DEFICIT/HYPERACTIVITY DISORDER
     Route: 048
     Dates: start: 20110207, end: 20110307
  72. RISPERDAL [Suspect]
     Active Substance: RISPERIDONE
     Indication: SENSORY INTEGRATIVE DYSFUNCTION
     Route: 048
     Dates: start: 20040405
  73. RISPERDAL [Suspect]
     Active Substance: RISPERIDONE
     Indication: AUTISM SPECTRUM DISORDER
     Route: 048
     Dates: start: 20101221
  74. RISPERDAL [Suspect]
     Active Substance: RISPERIDONE
     Indication: AUTISM SPECTRUM DISORDER
     Dosage: 0.25MG,2MG
     Route: 048
     Dates: start: 20020731, end: 20100902
  75. RISPERDAL [Suspect]
     Active Substance: RISPERIDONE
     Indication: ATTENTION DEFICIT/HYPERACTIVITY DISORDER
     Dosage: 1MG/ML,0.75ML,0.5ML
     Route: 048
     Dates: start: 20040426, end: 20070411
  76. RISPERDAL [Suspect]
     Active Substance: RISPERIDONE
     Indication: AUTISM SPECTRUM DISORDER
     Dosage: 0.75ML ,0.5ML
     Route: 048
     Dates: start: 20021118
  77. RISPERDAL [Suspect]
     Active Substance: RISPERIDONE
     Indication: AUTISM SPECTRUM DISORDER
     Route: 048
     Dates: start: 20060406
  78. RISPERDAL [Suspect]
     Active Substance: RISPERIDONE
     Indication: SENSORY INTEGRATIVE DYSFUNCTION
     Dosage: 1MG/1ML
     Route: 048
     Dates: start: 20060228
  79. RISPERDAL [Suspect]
     Active Substance: RISPERIDONE
     Indication: AUTISM SPECTRUM DISORDER
     Dosage: 0.75ML ,0.5ML
     Route: 048
     Dates: start: 20021118
  80. RISPERDAL [Suspect]
     Active Substance: RISPERIDONE
     Indication: AUTISM SPECTRUM DISORDER
     Route: 048
     Dates: start: 20110207, end: 20110307
  81. RISPERDAL [Suspect]
     Active Substance: RISPERIDONE
     Indication: SENSORY INTEGRATIVE DYSFUNCTION
     Route: 048
     Dates: start: 20120703, end: 20131105
  82. RISPERDAL [Suspect]
     Active Substance: RISPERIDONE
     Indication: SENSORY INTEGRATIVE DYSFUNCTION
     Route: 048
     Dates: start: 20101105
  83. RISPERDAL [Suspect]
     Active Substance: RISPERIDONE
     Indication: AUTISM SPECTRUM DISORDER
     Route: 048
     Dates: start: 20110207, end: 20110307
  84. RISPERDAL [Suspect]
     Active Substance: RISPERIDONE
     Indication: AUTISM SPECTRUM DISORDER
     Route: 048
     Dates: start: 20080917, end: 20110504

REACTIONS (2)
  - Abnormal weight gain [Unknown]
  - Gynaecomastia [Unknown]

NARRATIVE: CASE EVENT DATE: 2002
